FAERS Safety Report 5603732-2 (Version None)
Quarter: 2008Q1

REPORT INFORMATION
  Report Type: 
  Country: None (occurrence: None)
  Receive Date: 20080128
  Receipt Date: 20080118
  Transmission Date: 20080703
  Serious: Yes (Other)
  Sender: FDA-Public Use
  Company Number: DE-BAYER-200717571GPV

PATIENT
  Age: 66 Year
  Sex: Female
  Weight: 75 kg

DRUGS (5)
  1. ASPIRIN [Suspect]
     Indication: ANTICOAGULANT THERAPY
     Dosage: AS USED: 100 MG  UNIT DOSE: 100 MG
     Route: 065
     Dates: start: 20040101
  2. DIOVAN [Concomitant]
     Indication: HYPERTENSION
     Route: 065
     Dates: start: 20040101
  3. BISOLICH / BISOPROLOLFUMARAT HYDROCHLOROTHIAZID [Concomitant]
     Indication: HYPERTENSION
     Route: 065
     Dates: start: 20040101
  4. ARTHOTEC FORTE / DICLOFENAC-NA MISOPROSTOL [Concomitant]
     Indication: DRUG USE FOR UNKNOWN INDICATION
     Route: 065
  5. TEUFELSKRALLE [Concomitant]
     Indication: DRUG USE FOR UNKNOWN INDICATION
     Route: 065

REACTIONS (2)
  - ABDOMINAL PAIN UPPER [None]
  - DYSPEPSIA [None]
